FAERS Safety Report 9820744 (Version 1)
Quarter: 2013Q4

REPORT INFORMATION
  Report Type: Spontaneous
  Country: US (occurrence: None)
  Receive Date: 20131028
  Receipt Date: 20131028
  Transmission Date: 20140711
  Serious: Yes (Other)
  Sender: FDA-Public Use
  Company Number: 2013US001393

PATIENT
  Age: 60 Year
  Sex: Female
  Weight: 63 kg

DRUGS (6)
  1. ICLUSIG [Suspect]
     Indication: CHRONIC MYELOID LEUKAEMIA
     Route: 048
     Dates: start: 20130311
  2. POLYETHYLENE GLYCOL (POLYETHYLENE GLYCOL) [Concomitant]
  3. METFORMIN (METFORMIN) [Concomitant]
  4. MELOXICAM (MELOXICAM) [Concomitant]
  5. LISINOPRIL (LISINOPRIL) [Concomitant]
  6. CARVEDILOL (CARVEDILOL) [Concomitant]

REACTIONS (4)
  - Cystitis [None]
  - Constipation [None]
  - Hypertension [None]
  - Diarrhoea [None]
